FAERS Safety Report 12366458 (Version 2)
Quarter: 2016Q2

REPORT INFORMATION
  Report Type: Spontaneous
  Country: IE (occurrence: IE)
  Receive Date: 20160513
  Receipt Date: 20160601
  Transmission Date: 20160815
  Serious: Yes (Other)
  Sender: FDA-Public Use
  Company Number: IE-CELGENEUS-IRL-2016037070

PATIENT
  Age: 30 Year
  Sex: Female
  Weight: 60 kg

DRUGS (5)
  1. OTEZLA [Suspect]
     Active Substance: APREMILAST
     Indication: PSORIASIS
     Dosage: 60 MILLIGRAM
     Route: 048
     Dates: start: 20160211
  2. DOVOBET [Concomitant]
     Active Substance: BETAMETHASONE\CALCIPOTRIENE
     Indication: PRODUCT USED FOR UNKNOWN INDICATION
     Dosage: 50 MCG/G AND 0.5 MG/G
     Route: 065
     Dates: start: 201601
  3. MICROLITE [Concomitant]
     Active Substance: TECHNETIUM TC-99M ALBUMIN AGGREGATED
     Indication: PRODUCT USED FOR UNKNOWN INDICATION
     Dosage: 100/20 MCG
     Route: 065
     Dates: start: 201512
  4. DOVOBET [Concomitant]
     Active Substance: BETAMETHASONE\CALCIPOTRIENE
     Dosage: 50 MCG/G AND 0.5 MG/G
     Route: 065
     Dates: start: 201601
  5. FUMADERM [Concomitant]
     Active Substance: CALCIUM MONOETHYLFUMARATE\DIMETHYL FUMARATE\MAGNESIUM MONOETHYLFUMARATE\ZINC MONOETHYLFUMARATE
     Indication: PRODUCT USED FOR UNKNOWN INDICATION
     Route: 065
     Dates: start: 201511

REACTIONS (1)
  - Alopecia [Recovered/Resolved]

NARRATIVE: CASE EVENT DATE: 20160211
